FAERS Safety Report 7867097-8 (Version None)
Quarter: 2011Q4

REPORT INFORMATION
  Report Type: 
  Country: None (occurrence: None)
  Receive Date: 20111028
  Receipt Date: 20111017
  Transmission Date: 20120403
  Serious: Yes (Hospitalization)
  Sender: FDA-Public Use
  Company Number: JP-BRISTOL-MYERS SQUIBB COMPANY-16192734

PATIENT
  Age: 64 Year
  Sex: Male
  Weight: 56 kg

DRUGS (10)
  1. CETUXIMAB [Suspect]
     Indication: GASTRIC CANCER
     Dosage: 1 DF = 5MG/ML 3OCT11-DAY1/CYC3 402.5MG RECENT DOSE 12OCT11-96.6MG
     Route: 042
     Dates: start: 20110725, end: 20111012
  2. MINOCYCLINE HCL [Concomitant]
     Indication: ACNE
     Route: 048
     Dates: start: 20110924
  3. DIFLUPREDNATE [Concomitant]
     Indication: ACNE
     Route: 062
     Dates: start: 20110803
  4. HIRUDOID [Concomitant]
     Indication: DRY SKIN PROPHYLAXIS
     Route: 062
     Dates: start: 20110803
  5. RABEPRAZOLE SODIUM [Concomitant]
     Indication: PROPHYLAXIS AGAINST GASTROINTESTINAL ULCER
     Dosage: TABS
     Route: 048
     Dates: start: 20110914
  6. TS-1 [Suspect]
     Indication: GASTRIC CANCER
     Dosage: 3OCT11-DAY1/CYC3- 120MG/DAY
     Route: 048
     Dates: start: 20110725
  7. LOCOID [Concomitant]
     Indication: ACNE
     Route: 062
     Dates: start: 20110803
  8. AZUNOL [Concomitant]
     Indication: PROPHYLAXIS
     Route: 048
     Dates: start: 20110920
  9. CISPLATIN [Suspect]
     Indication: GASTRIC CANCER
     Dosage: RECENT DOSE 12OCT11-60MG/M2
     Route: 042
     Dates: start: 20110802, end: 20111012
  10. BETAMETHASONE [Concomitant]
     Indication: ACNE
     Route: 062
     Dates: start: 20110815

REACTIONS (1)
  - ELECTROCARDIOGRAM T WAVE INVERSION [None]
